FAERS Safety Report 18153719 (Version 1)
Quarter: 2020Q3

REPORT INFORMATION
  Report Type: Spontaneous
  Country: CA (occurrence: CA)
  Receive Date: 20200816
  Receipt Date: 20200816
  Transmission Date: 20201103
  Serious: Yes (Other)
  Sender: FDA-Public Use
  Company Number: NVSC2020CA225142

PATIENT
  Age: 57 Year
  Sex: Male

DRUGS (6)
  1. IXEKIZUMAB [Suspect]
     Active Substance: IXEKIZUMAB
     Indication: PRODUCT USED FOR UNKNOWN INDICATION
     Dosage: 80 MG
     Route: 065
  2. PROTOPIC [Concomitant]
     Active Substance: TACROLIMUS
     Indication: THERAPEUTIC SKIN CARE TOPICAL
     Dosage: UNK
     Route: 061
  3. COSENTYX [Suspect]
     Active Substance: SECUKINUMAB
     Indication: PSORIASIS
     Dosage: 300 MG
     Route: 058
  4. COSENTYX [Suspect]
     Active Substance: SECUKINUMAB
     Dosage: 300 MG
     Route: 058
  5. COSENTYX [Suspect]
     Active Substance: SECUKINUMAB
     Dosage: 300 MG
     Route: 058
  6. BETAMETHASONE DIPROPIONATE. [Concomitant]
     Active Substance: BETAMETHASONE DIPROPIONATE
     Indication: PRODUCT USED FOR UNKNOWN INDICATION
     Dosage: UNK
     Route: 065

REACTIONS (6)
  - Lower respiratory tract infection [Recovered/Resolved]
  - Back pain [Recovered/Resolved]
  - Anxiety [Recovered/Resolved]
  - Psoriasis [Recovered/Resolved]
  - Hyperhidrosis [Recovered/Resolved]
  - Wheezing [Recovered/Resolved]
